FAERS Safety Report 7131290-2 (Version None)
Quarter: 2010Q4

REPORT INFORMATION
  Report Type: 
  Country: None (occurrence: None)
  Receive Date: 20101124
  Receipt Date: 20101124
  Transmission Date: 20110411
  Serious: Yes (Other)
  Sender: FDA-Public Use
  Company Number: None

PATIENT
  Sex: Male
  Weight: 83.9154 kg

DRUGS (1)
  1. NOVEDEX XT 60 MG GASPARI NUTRITION [Suspect]
     Indication: MUSCLE BUILDING THERAPY
     Dosage: 2-3 DAILY PO
     Route: 048
     Dates: start: 20100401, end: 20100801

REACTIONS (2)
  - ANXIETY [None]
  - INSOMNIA [None]
